FAERS Safety Report 25789944 (Version 1)
Quarter: 2025Q3

REPORT INFORMATION
  Report Type: Spontaneous
  Country: AU (occurrence: AU)
  Receive Date: 20250911
  Receipt Date: 20250911
  Transmission Date: 20251021
  Serious: Yes (Disabling)
  Sender: MERCK SHARP & DOHME LLC
  Company Number: AU-GLAXOSMITHKLINE INC-AU2025APC023359

PATIENT
  Sex: Female

DRUGS (2)
  1. VARICELLA-ZOSTER VACCINE NOS [Suspect]
     Active Substance: VARICELLA-ZOSTER VACCINE
     Indication: Prophylaxis
  2. VARICELLA-ZOSTER VACCINE NOS [Suspect]
     Active Substance: VARICELLA-ZOSTER VACCINE

REACTIONS (1)
  - Pain [Not Recovered/Not Resolved]
